FAERS Safety Report 17500219 (Version 1)
Quarter: 2020Q1

REPORT INFORMATION
  Report Type: Spontaneous
  Country: NL (occurrence: NL)
  Receive Date: 20200305
  Receipt Date: 20200305
  Transmission Date: 20200409
  Serious: Yes (Other)
  Sender: FDA-Public Use
  Company Number: NL-GLAXOSMITHKLINE-NL2020036446

PATIENT
  Sex: Male
  Weight: 79 kg

DRUGS (2)
  1. ROPINIROLE HYDROCHLORIDE. [Suspect]
     Active Substance: ROPINIROLE HYDROCHLORIDE
     Indication: PRODUCT USED FOR UNKNOWN INDICATION
     Dosage: COATED TABLET, 0.5 MG (MILLIGRAM), 3 TIMES A DAY, 1
     Route: 065
     Dates: start: 2000
  2. OMEPRAZOL [Concomitant]
     Active Substance: OMEPRAZOLE
     Indication: PRODUCT USED FOR UNKNOWN INDICATION
     Dosage: GASTRO-RESISTANT CAPSULE, 20 MG (MILLIGRAMS)
     Route: 065

REACTIONS (1)
  - Sudden onset of sleep [Not Recovered/Not Resolved]
